FAERS Safety Report 9764916 (Version 1)
Quarter: 2013Q4

REPORT INFORMATION
  Report Type: Spontaneous
  Country: US (occurrence: None)
  Receive Date: 20131216
  Receipt Date: 20131216
  Transmission Date: 20140711
  Serious: Yes (Life-Threatening, Hospitalization, Disabling, Other)
  Sender: FDA-Public Use
  Company Number: None

PATIENT
  Age: 54 Year
  Sex: Male
  Weight: 88.91 kg

DRUGS (10)
  1. EXALGO ER [Suspect]
     Indication: ARTHRITIS
     Dosage: 1 PILL; ONCE DAILY 16 MG ER
     Route: 048
     Dates: start: 20131024, end: 20131125
  2. EXALGO ER [Suspect]
     Dosage: 1 PILL; ONCE DAILY 16 MG ER
     Route: 048
     Dates: start: 20131024, end: 20131125
  3. EXALGO ER [Suspect]
     Dosage: 1 PILL; ONCE DAILY 16 MG ER
     Route: 048
     Dates: start: 20131024, end: 20131125
  4. ALPRAZOLAM [Concomitant]
  5. QUETIAPINE [Concomitant]
  6. GABAPENTIN [Concomitant]
  7. LEVOTHYROXINE [Concomitant]
  8. OMEPRAZOLE [Concomitant]
  9. NASONEX [Concomitant]
  10. ASPIRIN [Concomitant]

REACTIONS (9)
  - Abnormal behaviour [None]
  - Agitation [None]
  - Suicidal ideation [None]
  - Paranoia [None]
  - Transient ischaemic attack [None]
  - Abasia [None]
  - Hypoaesthesia [None]
  - Drug withdrawal syndrome [None]
  - Aggression [None]
